FAERS Safety Report 20003358 (Version 1)
Quarter: 2021Q4

REPORT INFORMATION
  Report Type: Spontaneous
  Country: NL (occurrence: NL)
  Receive Date: 20211027
  Receipt Date: 20211027
  Transmission Date: 20220304
  Serious: Yes (Hospitalization)
  Sender: FDA-Public Use
  Company Number: None

PATIENT
  Age: 88 Year
  Sex: Female
  Weight: 62.5 kg

DRUGS (16)
  1. FUROSEMIDE [Interacting]
     Active Substance: FUROSEMIDE
     Indication: Product used for unknown indication
     Dosage: 20 MG ORALLY 1DD
     Route: 048
  2. PANTOPRAZOLE [Interacting]
     Active Substance: PANTOPRAZOLE
     Indication: Abdominal discomfort
     Dosage: 1 X PER DAY 1 PIECE
     Dates: start: 20170812
  3. APIXABAN [Concomitant]
     Active Substance: APIXABAN
  4. CALCIUM CARBONATE\CHOLECALCIFEROL [Concomitant]
     Active Substance: CALCIUM CARBONATE\CHOLECALCIFEROL
     Dosage: CHEWABLE TB 1.25 G/400 IU (500 MG CA), 1.25 G (GRAMS)/400 UNITS
  5. CARBOMER [Concomitant]
     Active Substance: CARBOMER
     Dosage: EYE GEL 2 MG/G (CARBOMER 980) MILLIGRAM PER GRAM)
  6. DEXAMETHASONE W/FRAMYCETIN/GRAMICID [Concomitant]
     Dosage: 0.5/5/0.05 MG/ML (MILLIGRAMS PER MILLILITER)
  7. DEXTRAN 70-HYPROMELLOSE [Concomitant]
     Dosage: EYE DROPS 1/3 MG/ML
  8. FERROUS FUMARATE [Concomitant]
     Active Substance: FERROUS FUMARATE
  9. GLICLAZIDE [Concomitant]
     Active Substance: GLICLAZIDE
  10. LEVOTHYROXINE [Concomitant]
     Active Substance: LEVOTHYROXINE
     Dosage: 88  MICROGRAM
  11. METOPROLOL [Concomitant]
     Active Substance: METOPROLOL
     Dosage: 50 MG (MILLIGRAMS)
  12. POLYETHYLENE GLYCOL 3350\POTASSIUM CHLORIDE\SODIUM BICARBONATE\SODIUM [Concomitant]
     Active Substance: POLYETHYLENE GLYCOL 3350\POTASSIUM CHLORIDE\SODIUM BICARBONATE\SODIUM CHLORIDE
     Dosage: POWDER FOR ORAL SOLUTION (MOVIC/MOLAX/LAXT/GEN), POWDER FOR SUSPENSION IN SACHET
  13. ACETAMINOPHEN [Concomitant]
     Active Substance: ACETAMINOPHEN
     Dosage: GRANULES 500MG IN SACHET, SACHET (GRANULES), 500 MG (MILLIGRAMS)
  14. ALBUTEROL [Concomitant]
     Active Substance: ALBUTEROL
     Dosage: AEROSOL, 100 MICRO GRAM/DOSE (MICROGRAMS PER DOSE)
  15. TRIAMCINOLONE ACETONIDE [Concomitant]
     Active Substance: TRIAMCINOLONE ACETONIDE
     Dosage: 1 MG/G (MILLIGRAMS PER GRAM)
  16. VASELINE PURE [Concomitant]
     Active Substance: PETROLATUM
     Dosage: OINTMENT, 1 GRAM PER GRAM

REACTIONS (7)
  - Muscle spasms [Recovered/Resolved]
  - Depressed level of consciousness [Recovered/Resolved]
  - Agitation [Recovered/Resolved]
  - Hypocalcaemia [Recovered/Resolved]
  - Drug interaction [Unknown]
  - Hypomagnesaemia [Recovered/Resolved]
  - Paraesthesia [Recovered/Resolved]

NARRATIVE: CASE EVENT DATE: 20210906
